FAERS Safety Report 20591174 (Version 2)
Quarter: 2022Q2

REPORT INFORMATION
  Report Type: Other
  Country: JP (occurrence: JP)
  Receive Date: 20220314
  Receipt Date: 20220411
  Transmission Date: 20220720
  Serious: Yes (Hospitalization, Other)
  Sender: FDA-Public Use
  Company Number: JP-CHUGAI-2022005599

PATIENT
  Age: 77 Year
  Sex: Male
  Weight: 60.4 kg

DRUGS (12)
  1. ATEZOLIZUMAB [Suspect]
     Active Substance: ATEZOLIZUMAB
     Indication: Lung adenocarcinoma
     Route: 041
     Dates: start: 20210202, end: 20210202
  2. ATEZOLIZUMAB [Suspect]
     Active Substance: ATEZOLIZUMAB
     Dosage: 1200 MILLIGRAM, QD
     Route: 041
     Dates: start: 20210304, end: 20210304
  3. ATEZOLIZUMAB [Suspect]
     Active Substance: ATEZOLIZUMAB
     Dosage: 1200 MILLIGRAM, ONCE/4WEEKS
     Route: 041
     Dates: start: 20210427, end: 20210524
  4. ATEZOLIZUMAB [Suspect]
     Active Substance: ATEZOLIZUMAB
     Dosage: 1200 MILLIGRAM, QD
     Route: 041
     Dates: start: 20210727, end: 20210727
  5. CARBOPLATIN [Suspect]
     Active Substance: CARBOPLATIN
     Indication: Lung adenocarcinoma
     Dosage: 420 MILLIGRAM, QD
     Route: 041
     Dates: start: 20210202, end: 20210202
  6. CARBOPLATIN [Suspect]
     Active Substance: CARBOPLATIN
     Dosage: 350 MILLIGRAM, QD
     Route: 041
     Dates: start: 20210304, end: 20210304
  7. CARBOPLATIN [Suspect]
     Active Substance: CARBOPLATIN
     Dosage: 280 MILLIGRAM, ONCE/4WEEKS
     Route: 041
     Dates: start: 20210427, end: 20210524
  8. PACLITAXEL [Suspect]
     Active Substance: PACLITAXEL
     Indication: Lung adenocarcinoma
     Dosage: 166 MILLIGRAM
     Route: 041
     Dates: start: 20210202, end: 20210216
  9. PACLITAXEL [Suspect]
     Active Substance: PACLITAXEL
     Dosage: 124 MILLIGRAM, ONCE/WEEK
     Route: 041
     Dates: start: 20210304, end: 20210318
  10. PACLITAXEL [Suspect]
     Active Substance: PACLITAXEL
     Dosage: 82 MILLIGRAM, ONCE/WEEK
     Route: 041
     Dates: start: 20210427, end: 20210513
  11. PACLITAXEL [Suspect]
     Active Substance: PACLITAXEL
     Dosage: 82 MILLIGRAM, ONCE/WEEK
     Route: 041
     Dates: start: 20210524, end: 20210607
  12. DECADRON [Concomitant]
     Active Substance: DEXAMETHASONE
     Route: 048

REACTIONS (3)
  - Large intestine perforation [Recovered/Resolved with Sequelae]
  - Febrile neutropenia [Recovered/Resolved]
  - Blood creatinine increased [Recovered/Resolved]

NARRATIVE: CASE EVENT DATE: 20210212
